FAERS Safety Report 25304698 (Version 1)
Quarter: 2025Q2

REPORT INFORMATION
  Report Type: Spontaneous
  Country: US (occurrence: US)
  Receive Date: 20250513
  Receipt Date: 20250513
  Transmission Date: 20250717
  Serious: No
  Sender: BRISTOL-MYERS SQUIBB COMPANY
  Company Number: US-BRISTOL-MYERS SQUIBB COMPANY-2025-069261

PATIENT

DRUGS (2)
  1. SOTYKTU [Interacting]
     Active Substance: DEUCRAVACITINIB
     Indication: Psoriasis
     Route: 048
  2. OCREVUS ZUNOVO [Interacting]
     Active Substance: HYALURONIDASE-OCSQ\OCRELIZUMAB
     Indication: Product used for unknown indication

REACTIONS (2)
  - Contraindicated product administered [Unknown]
  - Labelled drug-drug interaction issue [Unknown]
